FAERS Safety Report 21637726 (Version 1)
Quarter: 2022Q4

REPORT INFORMATION
  Report Type: Spontaneous
  Country: US (occurrence: US)
  Receive Date: 20221124
  Receipt Date: 20221124
  Transmission Date: 20230112
  Serious: No
  Sender: FDA-Public Use
  Company Number: US-BRISTOL-MYERS SQUIBB COMPANY-2022-141817

PATIENT
  Age: 78 Year
  Sex: Male
  Weight: 83 kg

DRUGS (15)
  1. POMALYST [Suspect]
     Active Substance: POMALIDOMIDE
     Indication: Plasma cell myeloma
     Dosage: FREQUENCY- 21 DAYS ON 7 DAYS OFF
     Route: 048
     Dates: start: 20221102, end: 20221118
  2. ONDANSETRON HCL [Concomitant]
     Active Substance: ONDANSETRON HYDROCHLORIDE
     Indication: Product used for unknown indication
     Route: 048
     Dates: start: 20221004
  3. VASCEPA [Concomitant]
     Active Substance: ICOSAPENT ETHYL
     Indication: Product used for unknown indication
     Route: 048
     Dates: start: 20221004
  4. KLOR-CON [Concomitant]
     Active Substance: POTASSIUM CHLORIDE
     Indication: Product used for unknown indication
     Dosage: 10MEQ DAILY
     Route: 048
     Dates: start: 20221004
  5. VALACYCLOVIR HYDROCHLORIDE [Concomitant]
     Active Substance: VALACYCLOVIR HYDROCHLORIDE
     Indication: Product used for unknown indication
     Dosage: DAILY
     Route: 048
     Dates: start: 20221004
  6. DULOXETINE [Concomitant]
     Active Substance: DULOXETINE
     Indication: Product used for unknown indication
     Dosage: DAILY
     Route: 048
     Dates: start: 20221004
  7. SIMVASTATIN [Concomitant]
     Active Substance: SIMVASTATIN
     Indication: Product used for unknown indication
     Dosage: DAILY
     Route: 048
     Dates: start: 20221004
  8. GABAPENTIN [Concomitant]
     Active Substance: GABAPENTIN
     Indication: Product used for unknown indication
     Dosage: DAILY
     Route: 048
     Dates: start: 20221004
  9. LOSARTAN POTASSIUM [Concomitant]
     Active Substance: LOSARTAN POTASSIUM
     Indication: Product used for unknown indication
     Dosage: DAILY
     Route: 048
     Dates: start: 20221004
  10. ASPIRIN COMPOUND [ACETYLSALICYLIC ACID;CAFFEINE] [Concomitant]
     Indication: Product used for unknown indication
     Dosage: 25-200 MG
     Route: 048
     Dates: start: 20221004
  11. TRAMADOL HCL [Concomitant]
     Active Substance: TRAMADOL HYDROCHLORIDE
     Indication: Product used for unknown indication
     Route: 048
     Dates: start: 20221004
  12. NITROFURANTOIN MONOHYDRATE MACROCRYSTALS [Concomitant]
     Active Substance: NITROFURANTOIN\NITROFURANTOIN MONOHYDRATE
     Indication: Product used for unknown indication
     Route: 048
     Dates: start: 20221020
  13. THEREMS [ASCORBIC ACID;BIOTIN;CALCIUM PANTOTHENATE;CALCIUM PHOSPHATE D [Concomitant]
     Indication: Product used for unknown indication
     Route: 048
     Dates: start: 20221020
  14. HYDROXOCOBALAMIN [Concomitant]
     Active Substance: HYDROXOCOBALAMIN
     Indication: Product used for unknown indication
     Dosage: 1000 MCG DAILY
     Route: 048
     Dates: start: 20221020
  15. ASCORBIC ACID\SODIUM ASCORBATE [Concomitant]
     Active Substance: ASCORBIC ACID\SODIUM ASCORBATE
     Indication: Product used for unknown indication
     Route: 048
     Dates: start: 20221020

REACTIONS (2)
  - Pain [Recovered/Resolved]
  - Arthralgia [Recovered/Resolved]

NARRATIVE: CASE EVENT DATE: 20221107
